FAERS Safety Report 8826924 (Version 1)
Quarter: 2012Q4

REPORT INFORMATION
  Report Type: 
  Country: US (occurrence: US)
  Receive Date: 20121008
  Receipt Date: 20121008
  Transmission Date: 20130627
  Serious: Yes (Other)
  Sender: FDA-Public Use
  Company Number: US-AMGEN-USASP2012061074

PATIENT
  Age: 49 Year
  Sex: Female

DRUGS (1)
  1. EPOGEN [Suspect]
     Indication: ANAEMIA
     Dosage: 5000 unit, qwk,receives Epogen PRN
     Route: 042

REACTIONS (3)
  - Sepsis [Unknown]
  - Catheter site haemorrhage [Unknown]
  - Haemoglobin decreased [Unknown]
